FAERS Safety Report 6466115-1 (Version None)
Quarter: 2009Q4

REPORT INFORMATION
  Report Type: 
  Country: None (occurrence: None)
  Receive Date: 20091201
  Receipt Date: 20091201
  Transmission Date: 20100525
  Serious: Yes (Hospitalization)
  Sender: FDA-Public Use
  Company Number: None

PATIENT
  Sex: Female
  Weight: 72.5755 kg

DRUGS (2)
  1. DEPO-PROVERA [Suspect]
     Indication: HAEMORRHAGE PROPHYLAXIS
     Dosage: INJECTION EVERY 3 MONTHS
  2. DEPO-PROVERA [Suspect]
     Indication: UTERINE LEIOMYOMA
     Dosage: INJECTION EVERY 3 MONTHS

REACTIONS (1)
  - DEEP VEIN THROMBOSIS [None]
